FAERS Safety Report 8263839 (Version 9)
Quarter: 2012Q4

REPORT INFORMATION
  Report Type: 
  Country: IN (occurrence: IN)
  Receive Date: 20111128
  Receipt Date: 20121004
  Transmission Date: 20130627
  Serious: Yes (Death, Life-Threatening, Hospitalization, Other)
  Sender: FDA-Public Use
  Company Number: PHHO2011IN17935

PATIENT
  Age: 40 Year
  Sex: Male

DRUGS (13)
  1. NEORAL [Suspect]
     Indication: RENAL TRANSPLANT
     Dosage: 75 mg, UNK
     Route: 048
     Dates: start: 20070605, end: 20111107
  2. CELLCEPT [Suspect]
     Indication: RENAL TRANSPLANT
     Dosage: UNK
     Route: 048
     Dates: end: 20111024
  3. FOLVITE [Concomitant]
     Dosage: UNK
     Dates: start: 20070617
  4. DILZEM [Concomitant]
     Dosage: UNK
     Dates: start: 20070617
  5. PANTOCID (PANTOPRAZOLE SODIUM) [Concomitant]
     Dosage: UNK
     Dates: start: 20070617
  6. ARKAMIN [Concomitant]
     Dosage: UNK
     Dates: start: 20070627, end: 20111010
  7. ATENOLOL [Concomitant]
     Dosage: UNK
     Dates: start: 20070617, end: 20111010
  8. DEFLAZACORT [Concomitant]
     Dosage: UNK
     Dates: start: 20071217
  9. AZATHIOPRINE [Concomitant]
     Dosage: UNK
     Dates: start: 20111101
  10. PANTOPRAZOLE [Concomitant]
     Dosage: UNK
     Dates: start: 20111025
  11. RACECADOTRIL [Concomitant]
     Dosage: UNK
     Dates: start: 20111101
  12. SODIUM BICARBONATE [Concomitant]
     Dosage: UNK
  13. CALCIUM GLUCONATE [Concomitant]
     Dosage: UNK
     Dates: start: 20111107

REACTIONS (6)
  - Cardio-respiratory arrest [Fatal]
  - Pneumonia [Fatal]
  - Cytomegalovirus infection [Fatal]
  - Sepsis [Fatal]
  - Septic shock [Fatal]
  - Diarrhoea [Recovered/Resolved]
